FAERS Safety Report 10592388 (Version 2)
Quarter: 2014Q4

REPORT INFORMATION
  Report Type: Spontaneous
  Country: JP (occurrence: None)
  Receive Date: 20141117
  Receipt Date: 20141215
  Transmission Date: 20150529
  Serious: Yes (Hospitalization, Disabling)
  Sender: FDA-Public Use
  Company Number: JP-017708

PATIENT
  Age: 86 Year
  Sex: Male
  Weight: 45 kg

DRUGS (3)
  1. ANTIANDROGENS, PLAIN [Concomitant]
  2. DEGARELIX (GONAX) (120MG,80MG) [Suspect]
     Active Substance: DEGARELIX
     Indication: PROSTATE CANCER
     Route: 058
     Dates: start: 20140917, end: 20140917
  3. BICALUTAMIDE. [Concomitant]
     Active Substance: BICALUTAMIDE

REACTIONS (1)
  - Anaemia [None]

NARRATIVE: CASE EVENT DATE: 20141028
